FAERS Safety Report 16066915 (Version 1)
Quarter: 2019Q1

REPORT INFORMATION
  Report Type: Spontaneous
  Country: US (occurrence: US)
  Receive Date: 20190313
  Receipt Date: 20190313
  Transmission Date: 20190418
  Serious: No
  Sender: FDA-Public Use
  Company Number: US-VERTEX PHARMACEUTICALS-2019-001829

PATIENT
  Age: 15 Year
  Sex: Female

DRUGS (1)
  1. SYMDEKO [Suspect]
     Active Substance: IVACAFTOR\TEZACAFTOR
     Indication: CYSTIC FIBROSIS
     Dosage: 100 MG TEZACAFTOR/ 150 MG IVACAFTOR; 150 MG IVACAFTOR , BID
     Route: 048
     Dates: start: 20190206, end: 20190301

REACTIONS (5)
  - Rash macular [Recovered/Resolved]
  - Acne [Not Recovered/Not Resolved]
  - Dysgeusia [Unknown]
  - Eye swelling [Unknown]
  - Swelling face [Not Recovered/Not Resolved]

NARRATIVE: CASE EVENT DATE: 201902
